FAERS Safety Report 15729647 (Version 6)
Quarter: 2019Q2

REPORT INFORMATION
  Report Type: Report from Study
  Country: ZA (occurrence: ZA)
  Receive Date: 20181217
  Receipt Date: 20190430
  Transmission Date: 20190711
  Serious: Yes (Life-Threatening, Hospitalization, Disabling, Other)
  Sender: FDA-Public Use
  Company Number: ZA-SAKK-2018SA290387AA

PATIENT
  Age: 75 Year
  Sex: Female

DRUGS (11)
  1. TWYNSTA [Concomitant]
     Active Substance: AMLODIPINE BESYLATE\TELMISARTAN
     Dosage: 5 MG, QD
     Dates: start: 20190212
  2. ECOTRIN [Concomitant]
     Active Substance: ASPIRIN
     Dosage: 81 MG, QD
     Dates: start: 20190212
  3. PURESIS [Concomitant]
     Active Substance: FUROSEMIDE
     Dosage: 20 MG, BID
     Dates: start: 20190212
  4. CILIFT [Concomitant]
     Active Substance: CITALOPRAM HYDROBROMIDE
     Dosage: 20 MG, QD
     Dates: start: 20190212
  5. TREPILINE [AMITRIPTYLINE HYDROCHLORIDE] [Concomitant]
     Active Substance: AMITRIPTYLINE HYDROCHLORIDE
     Dosage: 25 MG, QD AT AS (AFTER SUPPER)
     Dates: start: 20181023
  6. TAREG [Concomitant]
     Active Substance: VALSARTAN
     Dosage: 80 MG, QD
     Dates: start: 20190212
  7. INSULIN GLULISINE [Interacting]
     Active Substance: INSULIN GLULISINE
     Dosage: 10 U, TID, 4TH DOSE AT BEDTIME
     Dates: start: 20181019
  8. TOUJEO [Interacting]
     Active Substance: INSULIN GLARGINE
     Dosage: 25 U, QD
     Dates: start: 20181019
  9. INSULIN GLULISINE [Suspect]
     Active Substance: INSULIN GLULISINE
     Indication: TYPE 2 DIABETES MELLITUS
     Dosage: 4 U, QD
     Dates: start: 20181011
  10. TOUJEO [Interacting]
     Active Substance: INSULIN GLARGINE
     Dosage: 8 U, HS
     Dates: start: 20181011
  11. ASPAVOR [Concomitant]
     Active Substance: ATORVASTATIN
     Dosage: 20 MG, HS, AT BT (BED TIME)
     Dates: start: 20181023

REACTIONS (14)
  - Peripheral swelling [Not Recovered/Not Resolved]
  - Dyspnoea [Not Recovered/Not Resolved]
  - Oedema peripheral [Not Recovered/Not Resolved]
  - Pollakiuria [Not Recovered/Not Resolved]
  - Hyperglycaemia [Not Recovered/Not Resolved]
  - Glycosylated haemoglobin increased [Unknown]
  - Cough [Not Recovered/Not Resolved]
  - Throat irritation [Not Recovered/Not Resolved]
  - Urine odour abnormal [Not Recovered/Not Resolved]
  - Renal failure [Unknown]
  - Drug interaction [Unknown]
  - Nervousness [Recovered/Resolved]
  - Inappropriate schedule of product administration [Unknown]
  - Lung infection [Not Recovered/Not Resolved]

NARRATIVE: CASE EVENT DATE: 20181201
